FAERS Safety Report 8461260-3 (Version None)
Quarter: 2012Q2

REPORT INFORMATION
  Report Type: 
  Country: None (occurrence: None)
  Receive Date: 20120625
  Receipt Date: 20120611
  Transmission Date: 20120825
  Serious: Yes (Life-Threatening, Hospitalization, Other)
  Sender: FDA-Public Use
  Company Number: GB-RANBAXY-2012RR-57082

PATIENT
  Age: 56 Year
  Sex: Male

DRUGS (2)
  1. CO-DYDRAMOL [Suspect]
     Indication: PRODUCT USED FOR UNKNOWN INDICATION
     Dosage: 20 X 10/500 MG TABLETS (TOTALLING 10 G PARACETAMOL AND 200 MG DIHYDROCODEINE)
     Route: 048
  2. TRAMADOL HCL [Suspect]
     Indication: PRODUCT USED FOR UNKNOWN INDICATION
     Dosage: 60 X 50 MG TABLETS
     Route: 048

REACTIONS (4)
  - INTENTIONAL OVERDOSE [None]
  - RESPIRATORY FAILURE [None]
  - HYPONATRAEMIA [None]
  - INAPPROPRIATE ANTIDIURETIC HORMONE SECRETION [None]
